FAERS Safety Report 8302970-8 (Version None)
Quarter: 2012Q2

REPORT INFORMATION
  Report Type: 
  Country: None (occurrence: None)
  Receive Date: 20120420
  Receipt Date: 20120404
  Transmission Date: 20120825
  Serious: Yes (Other)
  Sender: FDA-Public Use
  Company Number: DE-ABBOTT-12P-062-0927649-00

PATIENT
  Age: 50 Year
  Sex: Male
  Weight: 97 kg

DRUGS (3)
  1. RANIBETA [Concomitant]
     Indication: DYSPHAGIA
     Route: 065
     Dates: start: 20081201
  2. TESTOSTERONE [Suspect]
     Indication: KLINEFELTER'S SYNDROME
     Route: 062
     Dates: start: 20090101
  3. TESTOVIRON-DEPOT [Suspect]
     Indication: HYPOGONADISM
     Route: 030
     Dates: start: 19920101, end: 20080101

REACTIONS (4)
  - FATIGUE [None]
  - SLEEP APNOEA SYNDROME [None]
  - EOSINOPHILIC OESOPHAGITIS [None]
  - DYSPHAGIA [None]
